FAERS Safety Report 4424647-1 (Version None)
Quarter: 2004Q3

REPORT INFORMATION
  Report Type: 
  Country: None (occurrence: None)
  Receive Date: 20040809
  Receipt Date: 20040803
  Transmission Date: 20050211
  Serious: Yes (Life-Threatening, Hospitalization, Other)
  Sender: FDA-Public Use
  Company Number: 2004-07-0077

PATIENT
  Age: 53 Year
  Sex: Male
  Weight: 67 kg

DRUGS (12)
  1. REBETOL [Suspect]
     Indication: HEPATITIS C
     Dosage: 800-600 MG ORAL; 800 MG ORAL; 600 MG ORAL
     Route: 048
     Dates: start: 20040206, end: 20040214
  2. REBETOL [Suspect]
     Indication: HEPATITIS C
     Dosage: 800-600 MG ORAL; 800 MG ORAL; 600 MG ORAL
     Route: 048
     Dates: start: 20040206, end: 20040614
  3. REBETOL [Suspect]
     Indication: HEPATITIS C
     Dosage: 800-600 MG ORAL; 800 MG ORAL; 600 MG ORAL
     Route: 048
     Dates: start: 20040215, end: 20040614
  4. INTRON A [Suspect]
     Indication: HEPATITIS C
     Dosage: SEE IMAGE
     Route: 030
     Dates: start: 20040206, end: 20040220
  5. INTRON A [Suspect]
     Indication: HEPATITIS C
     Dosage: SEE IMAGE
     Route: 030
     Dates: start: 20040221, end: 20040605
  6. INTRON A [Suspect]
     Indication: HEPATITIS C
     Dosage: SEE IMAGE
     Route: 030
     Dates: start: 20040206, end: 20040612
  7. INTRON A [Suspect]
     Indication: HEPATITIS C
     Dosage: SEE IMAGE
     Route: 030
     Dates: start: 20040608, end: 20040612
  8. STRONG NEO-MINOPHAGEN [Concomitant]
  9. URSO TABLETS [Concomitant]
  10. PROHEPARUM TABLETS [Concomitant]
  11. REBAMIPIDE TABLETS [Concomitant]
  12. LANSOPRAZOLE [Concomitant]

REACTIONS (4)
  - CEREBRAL HAEMORRHAGE [None]
  - FALL [None]
  - HYPERTENSION [None]
  - MEMORY IMPAIRMENT [None]
